FAERS Safety Report 8806089 (Version 7)
Quarter: 2013Q3

REPORT INFORMATION
  Report Type: Report from Study
  Country: GB (occurrence: GB)
  Receive Date: 20120925
  Receipt Date: 20130715
  Transmission Date: 20140515
  Serious: Yes (Hospitalization, Other)
  Sender: FDA-Public Use
  Company Number: GB-BRISTOL-MYERS SQUIBB COMPANY-16798712

PATIENT
  Age: 74 Year
  Sex: Male

DRUGS (4)
  1. PLACEBO [Suspect]
     Indication: TYPE 2 DIABETES MELLITUS
     Dosage: INTERRUPTED ON 9JUL12
     Dates: start: 20100723, end: 20120709
  2. FUSIDIC ACID [Suspect]
     Dosage: 26JUN12-08JUL12: 1.5GM
     Dates: start: 20120626, end: 20120709
  3. TRIMETHOPRIM [Suspect]
     Dates: start: 20120626, end: 20120709
  4. ASPIRIN [Concomitant]
     Dosage: 1 DF: ={100MG

REACTIONS (3)
  - Staphylococcal infection [Not Recovered/Not Resolved]
  - Renal impairment [Recovered/Resolved]
  - Jaundice [Recovered/Resolved]
